FAERS Safety Report 12482996 (Version 2)
Quarter: 2017Q4

REPORT INFORMATION
  Report Type: Spontaneous
  Country: BR (occurrence: BR)
  Receive Date: 20160620
  Receipt Date: 20171006
  Transmission Date: 20180320
  Serious: Yes (Other)
  Sender: FDA-Public Use
  Company Number: BR-AMGEN-BRASP2016078286

PATIENT
  Age: 58 Year
  Sex: Female

DRUGS (1)
  1. ENBREL [Suspect]
     Active Substance: ETANERCEPT
     Indication: RHEUMATOID ARTHRITIS
     Dosage: 50 MG, 1X/WEEK
     Route: 065
     Dates: start: 20160607

REACTIONS (6)
  - Autoimmune hepatitis [Unknown]
  - Gastroenteritis [Unknown]
  - Gait disturbance [Unknown]
  - Drug effect incomplete [Unknown]
  - Pain [Unknown]
  - Skin lesion [Unknown]

NARRATIVE: CASE EVENT DATE: 201606
